FAERS Safety Report 8014280-7 (Version None)
Quarter: 2011Q4

REPORT INFORMATION
  Report Type: 
  Country: None (occurrence: None)
  Receive Date: 20111229
  Receipt Date: 20111221
  Transmission Date: 20120403
  Serious: Yes (Other)
  Sender: FDA-Public Use
  Company Number: JP-GLAXOSMITHKLINE-B0771431A

PATIENT
  Age: 4 Decade
  Sex: Female

DRUGS (2)
  1. LAMICTAL [Suspect]
     Indication: EPILEPSY
     Dosage: 25MG TWICE PER DAY
     Route: 048
  2. LAMICTAL [Suspect]
     Dosage: 25MG PER DAY
     Route: 048

REACTIONS (2)
  - MANIA [None]
  - AGGRESSION [None]
